FAERS Safety Report 12213743 (Version 1)
Quarter: 2016Q1

REPORT INFORMATION
  Report Type: Spontaneous
  Country: US (occurrence: None)
  Receive Date: 20160325
  Receipt Date: 20160325
  Transmission Date: 20160526
  Serious: Yes (Death, Hospitalization)
  Sender: FDA-Public Use
  Company Number: None

PATIENT
  Age: 70 Year
  Sex: Male
  Weight: 99 kg

DRUGS (1)
  1. MEMANTINE HYDROCHLORIDE [Suspect]
     Active Substance: MEMANTINE HYDROCHLORIDE
     Dates: start: 20160304, end: 20160304

REACTIONS (8)
  - Unresponsive to stimuli [None]
  - Pulse absent [None]
  - Muscular weakness [None]
  - Gaze palsy [None]
  - Bradycardia [None]
  - Intracranial pressure increased [None]
  - Malaise [None]
  - Mydriasis [None]

NARRATIVE: CASE EVENT DATE: 20160305
